FAERS Safety Report 5147447-6 (Version None)
Quarter: 2006Q4

REPORT INFORMATION
  Report Type: 
  Country: None (occurrence: None)
  Receive Date: 20061109
  Receipt Date: 20061030
  Transmission Date: 20070319
  Serious: Yes (Death, Hospitalization, Other)
  Sender: FDA-Public Use
  Company Number: US-ABBOTT-06P-163-0349488-00

PATIENT
  Age: 12 Month
  Sex: Female

DRUGS (9)
  1. ACETAMINOPHEN/HYDROCODONE [Suspect]
     Indication: DRUG USE FOR UNKNOWN INDICATION
     Dosage: INGESTION
     Route: 048
  2. ACETAMINOPHEN/HYDROCODONE [Suspect]
  3. TIZANIDINE HCL [Suspect]
     Indication: DRUG USE FOR UNKNOWN INDICATION
     Dosage: INGESTION
     Route: 048
  4. TIZANIDINE HCL [Suspect]
  5. TIZANIDINE HCL [Suspect]
  6. TRAMADOL HCL [Suspect]
     Indication: DRUG USE FOR UNKNOWN INDICATION
     Dosage: INGESTION
     Route: 048
  7. MIRTAZAPINE [Suspect]
     Indication: DRUG USE FOR UNKNOWN INDICATION
     Dosage: INGESTION
     Route: 048
  8. MIRTAZAPINE [Suspect]
  9. ADDITIONAL SUBSTANCES NOT LISTED [Suspect]
     Indication: DRUG USE FOR UNKNOWN INDICATION
     Route: 048

REACTIONS (3)
  - CARDIO-RESPIRATORY ARREST [None]
  - COMA [None]
  - CONVULSION [None]
